FAERS Safety Report 8067438-5 (Version None)
Quarter: 2012Q1

REPORT INFORMATION
  Report Type: 
  Country: None (occurrence: None)
  Receive Date: 20120124
  Receipt Date: 20120118
  Transmission Date: 20120608
  Serious: Yes (Other)
  Sender: FDA-Public Use
  Company Number: US-PFIZER INC-2012015812

PATIENT
  Sex: Male

DRUGS (1)
  1. LYRICA [Suspect]
     Dosage: UNKNOWN

REACTIONS (3)
  - LIMB DISCOMFORT [None]
  - DIABETES MELLITUS [None]
  - BURNING SENSATION [None]
